FAERS Safety Report 15163936 (Version 2)
Quarter: 2018Q3

REPORT INFORMATION
  Report Type: Spontaneous
  Country: ES (occurrence: ES)
  Receive Date: 20180719
  Receipt Date: 20180720
  Transmission Date: 20181010
  Serious: Yes (Other)
  Sender: FDA-Public Use
  Company Number: ES-TEVA-2018-ES-928823

PATIENT
  Age: 64 Year
  Sex: Male

DRUGS (2)
  1. NAPROXENO (2002A) [Suspect]
     Active Substance: NAPROXEN
     Indication: BACK PAIN
     Dosage: 550 MILLIGRAM DAILY;
     Route: 048
     Dates: start: 20180122, end: 20180303
  2. DEXKETOPROFENO (7312A) [Interacting]
     Active Substance: DEXKETOPROFEN
     Indication: BACK PAIN
     Route: 048
     Dates: start: 20170704, end: 20180303

REACTIONS (4)
  - Gastritis erosive [Recovering/Resolving]
  - Upper gastrointestinal haemorrhage [Recovered/Resolved]
  - Drug interaction [Recovering/Resolving]
  - Anaemia [Unknown]

NARRATIVE: CASE EVENT DATE: 20180221
